FAERS Safety Report 4853625-3 (Version None)
Quarter: 2005Q4

REPORT INFORMATION
  Report Type: 
  Country: None (occurrence: None)
  Receive Date: 20051214
  Receipt Date: 20051110
  Transmission Date: 20060501
  Serious: Yes (Other)
  Sender: FDA-Public Use
  Company Number: 2005UW17142

PATIENT
  Age: 43 Year
  Sex: Male
  Weight: 63.5 kg

DRUGS (10)
  1. SEROQUEL [Suspect]
     Indication: BIPOLAR DISORDER
     Dosage: STARTER PACK
     Route: 048
     Dates: start: 20051101
  2. SEROQUEL [Suspect]
     Indication: INSOMNIA
     Dosage: STARTER PACK
     Route: 048
     Dates: start: 20051101
  3. SEROQUEL [Suspect]
     Indication: ATTENTION DEFICIT/HYPERACTIVITY DISORDER
     Dosage: STARTER PACK
     Route: 048
     Dates: start: 20051101
  4. SEROQUEL [Suspect]
     Route: 048
     Dates: start: 20051101
  5. SEROQUEL [Suspect]
     Route: 048
     Dates: start: 20051101
  6. SEROQUEL [Suspect]
     Route: 048
     Dates: start: 20051101
  7. VALIUM [Concomitant]
  8. MS CONTIN [Concomitant]
  9. MORPHINE [Concomitant]
  10. COMPAZINE [Concomitant]

REACTIONS (8)
  - COMMUNICATION DISORDER [None]
  - DIFFICULTY IN WALKING [None]
  - DIZZINESS [None]
  - DYSPNOEA [None]
  - FEELING DRUNK [None]
  - INCOHERENT [None]
  - MENTAL IMPAIRMENT [None]
  - SOMNOLENCE [None]
